FAERS Safety Report 18576325 (Version 1)
Quarter: 2020Q4

REPORT INFORMATION
  Report Type: Spontaneous
  Country: DE (occurrence: DE)
  Receive Date: 20201203
  Receipt Date: 20201203
  Transmission Date: 20210114
  Serious: Yes (Other)
  Sender: FDA-Public Use
  Company Number: DE-ASTRAZENECA-2020SF58365

PATIENT
  Age: 71 Year
  Sex: Male
  Weight: 70.7 kg

DRUGS (8)
  1. ATORVASTATIN [Concomitant]
     Active Substance: ATORVASTATIN
     Dosage: 10 MG (IRREGULAR)
  2. GLARGIN [Concomitant]
     Dosage: 300 IU/ ML 10 IU
  3. DAPAGLIFLOZIN. [Suspect]
     Active Substance: DAPAGLIFLOZIN
     Indication: TYPE 2 DIABETES MELLITUS
     Dosage: REDUCED UNKNOWN
     Route: 048
  4. SITAGLIPTIN/ METFORMIN [Concomitant]
     Dosage: SITAGLIPTIN 50MG / METFORMIN 1000 MG 1-0-1
  5. ESOMEPRAZOLE. [Concomitant]
     Active Substance: ESOMEPRAZOLE MAGNESIUM
     Dosage: 20 MG
  6. DULAGLUTIDE. [Concomitant]
     Active Substance: DULAGLUTIDE
  7. METFORMIN [Concomitant]
     Active Substance: METFORMIN HYDROCHLORIDE
     Dosage: 2 X 1000 MG
  8. DAPAGLIFLOZIN. [Suspect]
     Active Substance: DAPAGLIFLOZIN
     Indication: TYPE 2 DIABETES MELLITUS
     Dosage: 10.0MG UNKNOWN
     Route: 048

REACTIONS (5)
  - Acute coronary syndrome [Unknown]
  - Weight decreased [Recovered/Resolved]
  - Coronary artery disease [Unknown]
  - Chest pain [Recovering/Resolving]
  - Left ventricular dysfunction [Unknown]

NARRATIVE: CASE EVENT DATE: 20201029
